FAERS Safety Report 6635077-6 (Version None)
Quarter: 2010Q1

REPORT INFORMATION
  Report Type: 
  Country: None (occurrence: None)
  Receive Date: 20100315
  Receipt Date: 20100302
  Transmission Date: 20100710
  Serious: Yes (Hospitalization)
  Sender: FDA-Public Use
  Company Number: PHEH2010US02831

PATIENT

DRUGS (2)
  1. TEGRETOL [Suspect]
     Route: 048
  2. CARBAMAZEPINE [Suspect]

REACTIONS (1)
  - PSYCHOTIC DISORDER [None]
